FAERS Safety Report 15027200 (Version 1)
Quarter: 2018Q2

REPORT INFORMATION
  Report Type: Spontaneous
  Country: US (occurrence: US)
  Receive Date: 20180619
  Receipt Date: 20180619
  Transmission Date: 20180711
  Serious: No
  Sender: FDA-Public Use
  Company Number: US-ASTRAZENECA-2018SE76550

PATIENT
  Age: 925 Month
  Sex: Male
  Weight: 129.7 kg

DRUGS (3)
  1. SYMBICORT [Suspect]
     Active Substance: BUDESONIDE\FORMOTEROL FUMARATE DIHYDRATE
     Indication: DYSPNOEA
     Dosage: 80/4.5 MCG TWO INHALATIONS TWICE A DAY
     Route: 055
     Dates: start: 201805
  2. ISOSORBIDE MONONITRATE. [Suspect]
     Active Substance: ISOSORBIDE MONONITRATE
     Indication: ANGINA PECTORIS
     Route: 048
     Dates: start: 20180523
  3. ISOSORBIDE MONONITRATE. [Suspect]
     Active Substance: ISOSORBIDE MONONITRATE
     Indication: CHEST PAIN
     Route: 048
     Dates: start: 20180523

REACTIONS (7)
  - Drug dose omission [Not Recovered/Not Resolved]
  - Circumstance or information capable of leading to device use error [Not Recovered/Not Resolved]
  - Wrong technique in product usage process [Unknown]
  - Angina pectoris [Unknown]
  - Oxygen saturation decreased [Unknown]
  - Off label use [Not Recovered/Not Resolved]
  - Product use in unapproved indication [Not Recovered/Not Resolved]

NARRATIVE: CASE EVENT DATE: 201805
